FAERS Safety Report 8885890 (Version 6)
Quarter: 2013Q1

REPORT INFORMATION
  Report Type: Spontaneous
  Country: US (occurrence: US)
  Receive Date: 20121101
  Receipt Date: 20130124
  Transmission Date: 20140127
  Serious: No
  Sender: FDA-Public Use
  Company Number: US-ASTRAZENECA-2012SE78836

PATIENT
  Age: 55 Year
  Sex: Female
  Weight: 57.6 kg

DRUGS (52)
  1. SEROQUEL XR [Suspect]
     Indication: SLEEP DISORDER
     Route: 048
  2. SEROQUEL XR [Suspect]
     Indication: DEPRESSION
     Route: 048
  3. SEROQUEL XR [Suspect]
     Indication: WEIGHT INCREASED
     Route: 048
  4. SEROQUEL XR [Suspect]
     Indication: SLEEP DISORDER
     Route: 048
     Dates: start: 20120917, end: 2012
  5. SEROQUEL XR [Suspect]
     Indication: DEPRESSION
     Route: 048
     Dates: start: 20120917, end: 2012
  6. SEROQUEL XR [Suspect]
     Indication: WEIGHT INCREASED
     Route: 048
     Dates: start: 20120917, end: 2012
  7. SEROQUEL XR [Suspect]
     Indication: SLEEP DISORDER
     Route: 048
  8. SEROQUEL XR [Suspect]
     Indication: DEPRESSION
     Route: 048
  9. SEROQUEL XR [Suspect]
     Indication: WEIGHT INCREASED
     Route: 048
  10. SEROQUEL XR [Suspect]
     Indication: SLEEP DISORDER
     Dosage: GENERIC
     Route: 048
  11. SEROQUEL XR [Suspect]
     Indication: DEPRESSION
     Dosage: GENERIC
     Route: 048
  12. SEROQUEL XR [Suspect]
     Indication: WEIGHT INCREASED
     Dosage: GENERIC
     Route: 048
  13. SEROQUEL XR [Suspect]
     Indication: SLEEP DISORDER
     Route: 048
  14. SEROQUEL XR [Suspect]
     Indication: DEPRESSION
     Route: 048
  15. SEROQUEL XR [Suspect]
     Indication: WEIGHT INCREASED
     Route: 048
  16. SEROQUEL XR [Suspect]
     Indication: SLEEP DISORDER
     Route: 048
     Dates: start: 201209
  17. SEROQUEL XR [Suspect]
     Indication: DEPRESSION
     Route: 048
     Dates: start: 201209
  18. SEROQUEL XR [Suspect]
     Indication: WEIGHT INCREASED
     Route: 048
     Dates: start: 201209
  19. SEROQUEL XR [Suspect]
     Indication: SLEEP DISORDER
     Route: 048
     Dates: start: 201209
  20. SEROQUEL XR [Suspect]
     Indication: DEPRESSION
     Route: 048
     Dates: start: 201209
  21. SEROQUEL XR [Suspect]
     Indication: WEIGHT INCREASED
     Route: 048
     Dates: start: 201209
  22. SEROQUEL XR [Suspect]
     Indication: SLEEP DISORDER
     Route: 048
     Dates: start: 201208
  23. SEROQUEL XR [Suspect]
     Indication: DEPRESSION
     Route: 048
     Dates: start: 201208
  24. SEROQUEL XR [Suspect]
     Indication: WEIGHT INCREASED
     Route: 048
     Dates: start: 201208
  25. SEROQUEL XR [Suspect]
     Indication: SLEEP DISORDER
     Dosage: 100-200 MG AT NIGHT
     Route: 048
     Dates: start: 2012
  26. SEROQUEL XR [Suspect]
     Indication: DEPRESSION
     Dosage: 100-200 MG AT NIGHT
     Route: 048
     Dates: start: 2012
  27. SEROQUEL XR [Suspect]
     Indication: WEIGHT INCREASED
     Dosage: 100-200 MG AT NIGHT
     Route: 048
     Dates: start: 2012
  28. SOMA [Concomitant]
     Indication: MUSCLE RELAXANT THERAPY
     Dates: start: 1994
  29. SOMA [Concomitant]
     Indication: MUSCLE RELAXANT THERAPY
     Route: 048
  30. SOMA [Concomitant]
     Indication: MUSCLE RELAXANT THERAPY
     Route: 048
  31. NARCO [Concomitant]
     Indication: PAIN
     Dosage: PRN
     Dates: start: 1994
  32. NARCO [Concomitant]
     Indication: PAIN
     Dosage: 5/325 MG  AS NEEDED
     Route: 048
  33. OXYCONTIN [Concomitant]
     Indication: PAIN
     Route: 048
  34. OXYCONTIN [Concomitant]
     Indication: PAIN
     Route: 048
     Dates: start: 2007
  35. OXYCONTIN [Concomitant]
     Indication: PAIN
     Route: 048
     Dates: start: 2010
  36. OXYCONTIN [Concomitant]
     Indication: PAIN
     Route: 048
     Dates: start: 2012
  37. OXYCONTIN [Concomitant]
     Indication: PAIN
     Route: 048
  38. DIAZAPAM [Concomitant]
     Indication: ANXIETY
     Route: 048
  39. DIAZAPAM [Concomitant]
     Indication: ANXIETY
     Route: 048
     Dates: start: 2009
  40. DIAZAPAM [Concomitant]
     Indication: ANXIETY
     Route: 048
     Dates: start: 2010
  41. DIAZAPAM [Concomitant]
     Indication: ANXIETY
     Route: 048
     Dates: start: 2012
  42. DIAZAPAM [Concomitant]
     Indication: ANXIETY
     Route: 048
  43. HORMONE REPLACEMENT THERAPY [Concomitant]
  44. HORMONE REPLACEMENT THERAPY [Concomitant]
     Dates: start: 2008
  45. HORMONE REPLACEMENT THERAPY [Concomitant]
     Dates: start: 2009
  46. ALLEGRA-D [Concomitant]
     Indication: MULTIPLE ALLERGIES
     Dosage: PRN
  47. AMBIEN [Concomitant]
     Indication: INSOMNIA
     Route: 048
     Dates: start: 2012
  48. LIDODERM PATCH [Concomitant]
     Route: 062
     Dates: start: 2009
  49. VICODIN [Concomitant]
  50. VEL DOT [Concomitant]
     Indication: HORMONE REPLACEMENT THERAPY
     Dosage: 0.1 MG BIWK
     Route: 061
  51. PROGESTERONE COMPOUND [Concomitant]
     Indication: HORMONE REPLACEMENT THERAPY
     Route: 048
  52. TESTOSTERONE COMPOUND [Concomitant]
     Indication: HORMONE REPLACEMENT THERAPY
     Dosage: 2 MG MWF
     Route: 050

REACTIONS (21)
  - Nasopharyngitis [Unknown]
  - Amnesia [Unknown]
  - Fluid retention [Unknown]
  - Depression [Not Recovered/Not Resolved]
  - Throat irritation [Not Recovered/Not Resolved]
  - Ear discomfort [Not Recovered/Not Resolved]
  - Insomnia [Unknown]
  - Confusional state [Unknown]
  - Pollakiuria [Unknown]
  - Urine calcium [Unknown]
  - Constipation [Unknown]
  - Abnormal dreams [Not Recovered/Not Resolved]
  - Weight increased [Not Recovered/Not Resolved]
  - Nightmare [Not Recovered/Not Resolved]
  - Dry mouth [Not Recovered/Not Resolved]
  - Abnormal dreams [Unknown]
  - Blood glucose increased [Unknown]
  - Sleep talking [Unknown]
  - Off label use [Unknown]
  - Drug ineffective [Unknown]
  - Intentional drug misuse [Unknown]
